FAERS Safety Report 5351888-1 (Version None)
Quarter: 2007Q2

REPORT INFORMATION
  Report Type: 
  Country: None (occurrence: None)
  Receive Date: 20070609
  Receipt Date: 20070529
  Transmission Date: 20071010
  Serious: Yes (Hospitalization)
  Sender: FDA-Public Use
  Company Number: AU-ABBOTT-07P-008-0369657-00

PATIENT
  Age: 35 Year
  Sex: Male

DRUGS (1)
  1. REDUCTIL [Suspect]
     Indication: OBESITY
     Dates: start: 20061001

REACTIONS (4)
  - ABNORMAL BEHAVIOUR [None]
  - ANGER [None]
  - IRRITABILITY [None]
  - SUICIDAL IDEATION [None]
